FAERS Safety Report 13234181 (Version 1)
Quarter: 2017Q1

REPORT INFORMATION
  Report Type: Spontaneous
  Country: US (occurrence: US)
  Receive Date: 20170215
  Receipt Date: 20170215
  Transmission Date: 20170428
  Serious: Yes (Hospitalization)
  Sender: FDA-Public Use
  Company Number: None

PATIENT
  Age: 72 Year
  Sex: Female

DRUGS (3)
  1. PANTOPRAZOLE [Suspect]
     Active Substance: PANTOPRAZOLE SODIUM
  2. ERTAPENEM [Suspect]
     Active Substance: ERTAPENEM
  3. CIPROFLOXACIN. [Suspect]
     Active Substance: CIPROFLOXACIN

REACTIONS (4)
  - Abdominal pain [None]
  - Diarrhoea [None]
  - Vomiting [None]
  - Clostridium difficile infection [None]

NARRATIVE: CASE EVENT DATE: 20150802
